FAERS Safety Report 18437129 (Version 3)
Quarter: 2020Q4

REPORT INFORMATION
  Report Type: Spontaneous
  Country: CH (occurrence: CH)
  Receive Date: 20201028
  Receipt Date: 20201117
  Transmission Date: 20210114
  Serious: Yes (Other)
  Sender: FDA-Public Use
  Company Number: CH-PFIZER INC-2020414223

PATIENT
  Age: 65 Year
  Sex: Female

DRUGS (2)
  1. XANAX [Suspect]
     Active Substance: ALPRAZOLAM
     Indication: SLEEP DISORDER
     Dosage: 0.25 MG
  2. XANAX [Suspect]
     Active Substance: ALPRAZOLAM
     Dosage: HALF OF 0.25 MG, BUT OFTEN ALSO A QUARTER OF 0.25 MG, SO A MAXIMUM OF HALF OF 0.25 MG PER DAY

REACTIONS (6)
  - Off label use [Unknown]
  - Drug abuse [Unknown]
  - Cystitis [Recovered/Resolved]
  - Product use in unapproved indication [Unknown]
  - Frequent bowel movements [Unknown]
  - Blood urine present [Unknown]

NARRATIVE: CASE EVENT DATE: 20200925
